FAERS Safety Report 10550108 (Version 1)
Quarter: 2014Q4

REPORT INFORMATION
  Report Type: Spontaneous
  Country: IT (occurrence: IT)
  Receive Date: 20141028
  Receipt Date: 20141028
  Transmission Date: 20150529
  Serious: Yes (Other)
  Sender: FDA-Public Use
  Company Number: IT-US-EMD SERONO, INC.-7330428

PATIENT
  Age: 38 Year
  Sex: Male

DRUGS (1)
  1. REBIF [Suspect]
     Active Substance: INTERFERON BETA-1A
     Indication: MULTIPLE SCLEROSIS
     Dosage: 44 MCG/0.5 ML
     Route: 058
     Dates: start: 20110101

REACTIONS (3)
  - Epistaxis [Unknown]
  - Confusional state [Unknown]
  - Transaminases increased [Unknown]

NARRATIVE: CASE EVENT DATE: 20110131
